FAERS Safety Report 6490043-9 (Version None)
Quarter: 2009Q4

REPORT INFORMATION
  Report Type: 
  Country: None (occurrence: None)
  Receive Date: 20091211
  Receipt Date: 20091209
  Transmission Date: 20100525
  Serious: Yes (Death, Hospitalization)
  Sender: FDA-Public Use
  Company Number: GB-ROCHE-671486

PATIENT
  Sex: Female
  Weight: 65 kg

DRUGS (8)
  1. CAPECITABINE [Suspect]
     Dosage: DATE OF MOST RESCENT ADMINISTRATION: 13 NOVEMBER 2009.
     Route: 048
     Dates: start: 20091022
  2. BEVACIZUMAB [Suspect]
     Dosage: DATE OF MOST RESCENT ADMINISTRATION: 12 NOVEMBER 2009.
     Route: 042
     Dates: start: 20091022
  3. CISPLATIN [Suspect]
     Dosage: DATE OF MOST RESCENT ADMINISTRATION: 12 NOVEMBER 2009.
     Route: 042
     Dates: start: 20091022
  4. EPIRUBICIN [Suspect]
     Dosage: DATE OF MOST RESCENT ADMINISTRATION: 12 NOVEMBER 2009.
     Route: 042
     Dates: start: 20091022
  5. ONDANSETRON [Concomitant]
     Route: 048
     Dates: start: 20091112
  6. DOMPERIDONE [Concomitant]
     Route: 048
     Dates: start: 20091022
  7. ATORVASTATIN CALCIUM [Concomitant]
     Route: 048
  8. OMEPRAZOLE [Concomitant]
     Route: 048

REACTIONS (2)
  - DIARRHOEA [None]
  - NEUTROPENIC SEPSIS [None]
